FAERS Safety Report 12290381 (Version 1)
Quarter: 2016Q2

REPORT INFORMATION
  Report Type: Spontaneous
  Country: US (occurrence: None)
  Receive Date: 20160420
  Receipt Date: 20160420
  Transmission Date: 20160815
  Serious: Yes (Life-Threatening)
  Sender: FDA-Public Use
  Company Number: None

PATIENT
  Age: 71 Year
  Sex: Male
  Weight: 82.5 kg

DRUGS (1)
  1. CIPROFLOXACIN/DEXTROSE [Suspect]
     Active Substance: CIPROFLOXACIN HYDROCHLORIDE\DEXTROSE
     Indication: CYSTITIS
     Route: 042
     Dates: start: 20160306, end: 20160306

REACTIONS (5)
  - Hypotension [None]
  - Atrial flutter [None]
  - Hyperhidrosis [None]
  - Rash [None]
  - Tachycardia [None]

NARRATIVE: CASE EVENT DATE: 20160306
